FAERS Safety Report 22831597 (Version 2)
Quarter: 2024Q3

REPORT INFORMATION
  Report Type: Spontaneous
  Country: JP (occurrence: JP)
  Receive Date: 20230817
  Receipt Date: 20240930
  Transmission Date: 20241016
  Serious: Yes (Life-Threatening, Other)
  Sender: ASTELLAS
  Company Number: JP-ASTELLAS-2023JP005374

PATIENT
  Age: 6 Decade
  Sex: Male

DRUGS (36)
  1. TACROLIMUS [Suspect]
     Active Substance: TACROLIMUS
     Indication: VEXAS syndrome
     Dosage: UNK UNK, UNKNOWN FREQ.
     Route: 065
     Dates: start: 2014
  2. TACROLIMUS [Suspect]
     Active Substance: TACROLIMUS
     Indication: Acute febrile neutrophilic dermatosis
  3. METHYLPREDNISOLONE [Suspect]
     Active Substance: METHYLPREDNISOLONE
     Indication: Haemophagocytic lymphohistiocytosis
     Dosage: 80 MG/DAY, UNKNOWN FREQ.
     Route: 042
  4. METHYLPREDNISOLONE [Suspect]
     Active Substance: METHYLPREDNISOLONE
     Indication: Haemophagocytic lymphohistiocytosis
     Dosage: UNK UNK, UNKNOWN FREQ.
     Route: 065
     Dates: start: 2016
  5. METHYLPREDNISOLONE [Suspect]
     Active Substance: METHYLPREDNISOLONE
     Indication: Epstein-Barr virus infection
     Dosage: 1000 MG/DAY, UNKNOWN FREQ.
     Route: 065
     Dates: start: 2017
  6. METHYLPREDNISOLONE [Suspect]
     Active Substance: METHYLPREDNISOLONE
     Dosage: 1 MG/DAY, UNKNOWN FREQ.
     Route: 065
  7. METHYLPREDNISOLONE [Suspect]
     Active Substance: METHYLPREDNISOLONE
     Dosage: UNK UNK, UNKNOWN FREQ.
     Route: 065
     Dates: start: 2021
  8. METHYLPREDNISOLONE [Suspect]
     Active Substance: METHYLPREDNISOLONE
     Dosage: 8 MG/DAY, UNKNOWN FREQ.
     Route: 065
  9. BETAMETHASONE [Suspect]
     Active Substance: BETAMETHASONE
     Indication: Haemophagocytic lymphohistiocytosis
     Dosage: UNK UNK, UNKNOWN FREQ.
     Route: 048
     Dates: start: 2016
  10. PREDNISOLONE [Suspect]
     Active Substance: PREDNISOLONE
     Indication: Haemophagocytic lymphohistiocytosis
     Dosage: UNK UNK, UNKNOWN FREQ.
     Route: 048
  11. PREDNISOLONE [Suspect]
     Active Substance: PREDNISOLONE
     Dosage: 20 MG/DAY, UNKNOWN FREQ.
     Route: 048
  12. PREDNISOLONE [Suspect]
     Active Substance: PREDNISOLONE
     Indication: VEXAS syndrome
     Dosage: 60 MG/DAY, UNKNOWN FREQ.
     Route: 042
     Dates: start: 2017
  13. PREDNISOLONE [Suspect]
     Active Substance: PREDNISOLONE
     Indication: Haemophagocytic lymphohistiocytosis
     Dosage: 60 MG/M2 (95 MG/BODY), UNKNOWN FREQ.
     Route: 065
  14. PREDNISOLONE [Suspect]
     Active Substance: PREDNISOLONE
     Indication: Epstein-Barr virus infection
     Dosage: UNK UNK, UNKNOWN FREQ.
     Route: 065
     Dates: start: 2021
  15. CYCLOSPORINE [Suspect]
     Active Substance: CYCLOSPORINE
     Indication: Haemophagocytic lymphohistiocytosis
     Dosage: UNK UNK, UNKNOWN FREQ.
     Route: 042
     Dates: start: 2017
  16. CYCLOSPORINE [Suspect]
     Active Substance: CYCLOSPORINE
     Indication: Epstein-Barr virus infection
     Dosage: 100 MG/DAY, UNKNOWN FREQ.
     Route: 065
  17. INFLIXIMAB [Concomitant]
     Active Substance: INFLIXIMAB
     Indication: Product used for unknown indication
     Dosage: UNK UNK, UNKNOWN FREQ.
     Route: 065
     Dates: start: 2014
  18. TOCILIZUMAB [Concomitant]
     Active Substance: TOCILIZUMAB
     Indication: Product used for unknown indication
     Dosage: UNK UNK, UNKNOWN FREQ.
     Route: 065
  19. DEXAMETHASONE [Concomitant]
     Active Substance: DEXAMETHASONE
     Indication: Haemophagocytic lymphohistiocytosis
     Dosage: UNK UNK, UNKNOWN FREQ.
     Route: 065
     Dates: start: 2017
  20. DEXAMETHASONE [Concomitant]
     Active Substance: DEXAMETHASONE
     Indication: Epstein-Barr virus infection
  21. ETOPOSIDE [Concomitant]
     Active Substance: ETOPOSIDE
     Indication: Haemophagocytic lymphohistiocytosis
     Dosage: 150 MG/M2, UNKNOWN FREQ.
     Route: 065
     Dates: start: 2017
  22. ETOPOSIDE [Concomitant]
     Active Substance: ETOPOSIDE
     Indication: Epstein-Barr virus infection
  23. MEROPENEM [Concomitant]
     Active Substance: MEROPENEM
     Indication: Febrile neutropenia
     Dosage: UNK UNK, UNKNOWN FREQ.
     Route: 065
  24. MEROPENEM [Concomitant]
     Active Substance: MEROPENEM
     Indication: Klebsiella bacteraemia
  25. MEROPENEM [Concomitant]
     Active Substance: MEROPENEM
     Indication: Renal abscess
  26. GLOBULIN [Concomitant]
     Indication: Haemophagocytic lymphohistiocytosis
     Dosage: 2 MG/KG, UNKNOWN FREQ.
     Route: 042
  27. GLOBULIN [Concomitant]
     Indication: Epstein-Barr virus infection
  28. CYCLOPHOSPHAMIDE [Concomitant]
     Active Substance: CYCLOPHOSPHAMIDE
     Indication: VEXAS syndrome
     Dosage: 750 MG/M2 (1200 MG/BODY), UNKNOWN FREQ.
     Route: 065
  29. CYCLOPHOSPHAMIDE [Concomitant]
     Active Substance: CYCLOPHOSPHAMIDE
     Indication: Haemophagocytic lymphohistiocytosis
  30. CYCLOPHOSPHAMIDE [Concomitant]
     Active Substance: CYCLOPHOSPHAMIDE
     Indication: Epstein-Barr virus infection
  31. DOXORUBICIN HYDROCHLORIDE [Concomitant]
     Active Substance: DOXORUBICIN HYDROCHLORIDE
     Indication: VEXAS syndrome
     Dosage: 50 MG/M2 (80 MG/BODY), UNKNOWN FREQ.
     Route: 065
  32. DOXORUBICIN HYDROCHLORIDE [Concomitant]
     Active Substance: DOXORUBICIN HYDROCHLORIDE
     Indication: Haemophagocytic lymphohistiocytosis
  33. DOXORUBICIN HYDROCHLORIDE [Concomitant]
     Active Substance: DOXORUBICIN HYDROCHLORIDE
     Indication: Epstein-Barr virus infection
  34. VINCRISTINE SULFATE [Concomitant]
     Active Substance: VINCRISTINE SULFATE
     Indication: VEXAS syndrome
     Dosage: 1.4 MG/M2 (2 MG/BODY), UNKNOWN FREQ.
     Route: 065
  35. VINCRISTINE SULFATE [Concomitant]
     Active Substance: VINCRISTINE SULFATE
     Indication: Haemophagocytic lymphohistiocytosis
  36. VINCRISTINE SULFATE [Concomitant]
     Active Substance: VINCRISTINE SULFATE
     Indication: Epstein-Barr virus infection

REACTIONS (11)
  - Haemophagocytic lymphohistiocytosis [Recovering/Resolving]
  - Herpes zoster disseminated [Unknown]
  - Necrotising soft tissue infection [Unknown]
  - Epstein-Barr virus infection [Recovering/Resolving]
  - Febrile neutropenia [Unknown]
  - Febrile neutropenia [Unknown]
  - Klebsiella bacteraemia [Unknown]
  - Renal abscess [Unknown]
  - Enterococcal infection [Unknown]
  - Staphylococcal bacteraemia [Unknown]
  - Off label use [Unknown]

NARRATIVE: CASE EVENT DATE: 20160101
